FAERS Safety Report 19624805 (Version 2)
Quarter: 2022Q1

REPORT INFORMATION
  Report Type: Spontaneous
  Country: GB (occurrence: GB)
  Receive Date: 20210728
  Receipt Date: 20220329
  Transmission Date: 20220423
  Serious: Yes (Other)
  Sender: FDA-Public Use
  Company Number: None

PATIENT
  Age: 54 Year
  Sex: Male
  Weight: 81 kg

DRUGS (1)
  1. NAPROXEN [Suspect]
     Active Substance: NAPROXEN
     Indication: Product used for unknown indication
     Dosage: 500 MILLIGRAM
     Dates: start: 20130903, end: 20210621

REACTIONS (4)
  - Duodenitis [Unknown]
  - Gastrointestinal haemorrhage [Recovering/Resolving]
  - Peptic ulcer [Unknown]
  - Gastritis [Unknown]

NARRATIVE: CASE EVENT DATE: 20210620
